FAERS Safety Report 13855423 (Version 1)
Quarter: 2017Q3

REPORT INFORMATION
  Report Type: Spontaneous
  Country: None (occurrence: US)
  Receive Date: 20170810
  Receipt Date: 20170810
  Transmission Date: 20171127
  Serious: No
  Sender: FDA-Public Use
  Company Number: US-VIFOR (INTERNATIONAL) INC.-VIT-2017-07110

PATIENT
  Sex: Female

DRUGS (7)
  1. VELTASSA [Suspect]
     Active Substance: PATIROMER
     Indication: BLOOD POTASSIUM ABNORMAL
     Route: 048
     Dates: start: 201706, end: 201706
  2. ELIQUIS [Concomitant]
     Active Substance: APIXABAN
  3. FUROSEMIDE. [Concomitant]
     Active Substance: FUROSEMIDE
  4. GABAPENTIN. [Concomitant]
     Active Substance: GABAPENTIN
  5. RANITIDINE. [Concomitant]
     Active Substance: RANITIDINE
  6. KIONEX [Concomitant]
     Active Substance: SODIUM POLYSTYRENE SULFONATE
     Indication: BLOOD POTASSIUM ABNORMAL
  7. VELTASSA [Suspect]
     Active Substance: PATIROMER
     Dates: start: 201706

REACTIONS (5)
  - Abdominal pain upper [Recovering/Resolving]
  - Palpitations [Recovering/Resolving]
  - Headache [Recovering/Resolving]
  - Inappropriate schedule of drug administration [Unknown]
  - Asthenia [Recovering/Resolving]

NARRATIVE: CASE EVENT DATE: 201706
